FAERS Safety Report 17406557 (Version 1)
Quarter: 2020Q1

REPORT INFORMATION
  Report Type: Spontaneous
  Country: US (occurrence: US)
  Receive Date: 20200211
  Receipt Date: 20200211
  Transmission Date: 20200409
  Serious: Yes (Life-Threatening, Hospitalization, Disabling)
  Sender: FDA-Public Use
  Company Number: None

PATIENT
  Age: 34 Year
  Sex: Female
  Weight: 54.4 kg

DRUGS (5)
  1. BACTRIM DS [Suspect]
     Active Substance: SULFAMETHOXAZOLE\TRIMETHOPRIM
     Indication: SINUS DISORDER
     Route: 048
     Dates: start: 20140917, end: 20140928
  2. MEDROL DOSEPAK 4MG TABS [Concomitant]
     Dates: start: 20140917
  3. DOXYCYCLINE HYCLATE 100MG CAPS [Concomitant]
     Active Substance: DOXYCYCLINE HYCLATE
     Dates: start: 20140820, end: 20140903
  4. PATANASE 0.6% SOLUTION [Concomitant]
     Dates: start: 20140917
  5. AUGMENTIN 500MG/125MG TABS [Concomitant]
     Dates: start: 20140708, end: 20140722

REACTIONS (10)
  - Dyspnoea [None]
  - Pneumothorax [None]
  - Pneumonia [None]
  - Diffuse alveolar damage [None]
  - Respiratory failure [None]
  - Chest pain [None]
  - Autoimmune disorder [None]
  - Hypoxia [None]
  - Lung transplant [None]
  - Lung opacity [None]

NARRATIVE: CASE EVENT DATE: 20140928
